FAERS Safety Report 7569760-5 (Version None)
Quarter: 2011Q2

REPORT INFORMATION
  Report Type: 
  Country: None (occurrence: None)
  Receive Date: 20110624
  Receipt Date: 20110613
  Transmission Date: 20111010
  Serious: Yes (Hospitalization)
  Sender: FDA-Public Use
  Company Number: CA-JNJFOC-20110607142

PATIENT
  Sex: Male
  Weight: 73 kg

DRUGS (2)
  1. IMURAN [Concomitant]
  2. REMICADE [Suspect]
     Indication: CROHN'S DISEASE
     Route: 042
     Dates: start: 20090924

REACTIONS (2)
  - SPINAL CORD OPERATION [None]
  - PNEUMONIA [None]
